FAERS Safety Report 16949672 (Version 1)
Quarter: 2019Q4

REPORT INFORMATION
  Report Type: Spontaneous
  Country: US (occurrence: US)
  Receive Date: 20191023
  Receipt Date: 20191023
  Transmission Date: 20200122
  Serious: No
  Sender: FDA-Public Use
  Company Number: US-GLAXOSMITHKLINE-US2019186921

PATIENT
  Age: 73 Year
  Sex: Female

DRUGS (1)
  1. BREO ELLIPTA [Suspect]
     Active Substance: FLUTICASONE FUROATE\VILANTEROL TRIFENATATE
     Indication: ASTHMA
     Dosage: 1 PUFF(S), 1D
     Route: 055
     Dates: start: 201804, end: 20190912

REACTIONS (10)
  - Dysphonia [Not Recovered/Not Resolved]
  - Oral surgery [Unknown]
  - Peripheral swelling [Recovered/Resolved]
  - Mouth haemorrhage [Unknown]
  - Tooth injury [Unknown]
  - Weight increased [Recovered/Resolved]
  - Tooth disorder [Recovered/Resolved with Sequelae]
  - Hunger [Unknown]
  - Candida infection [Recovered/Resolved]
  - Abdominal distension [Recovered/Resolved]

NARRATIVE: CASE EVENT DATE: 20190927
